FAERS Safety Report 10395763 (Version 2)
Quarter: 2014Q3

REPORT INFORMATION
  Report Type: Report from Study
  Country: CN (occurrence: CN)
  Receive Date: 20140820
  Receipt Date: 20140820
  Transmission Date: 20150326
  Serious: Yes (Hospitalization)
  Sender: FDA-Public Use
  Company Number: CN-BAYER-2014-108314

PATIENT
  Age: 70 Year
  Sex: Male

DRUGS (3)
  1. NEXAVAR [Suspect]
     Active Substance: SORAFENIB
     Indication: METASTASES TO LUNG
     Dosage: 200 MG, QD
     Dates: start: 20140718, end: 20140730
  2. NEXAVAR [Suspect]
     Active Substance: SORAFENIB
     Indication: HEPATIC CANCER STAGE IV
     Dosage: 400 MG, BID
     Dates: start: 20140505, end: 20140717
  3. NEXAVAR [Suspect]
     Active Substance: SORAFENIB
     Indication: HEPATIC CANCER STAGE IV
     Dosage: 200 MG, QD
     Dates: start: 20140731

REACTIONS (5)
  - Ascites [None]
  - Palmar-plantar erythrodysaesthesia syndrome [Recovered/Resolved]
  - Abdominal pain [None]
  - Diarrhoea [None]
  - Hepatic pain [Recovered/Resolved]

NARRATIVE: CASE EVENT DATE: 20140512
